FAERS Safety Report 4332360-4 (Version None)
Quarter: 2004Q2

REPORT INFORMATION
  Report Type: 
  Country: None (occurrence: None)
  Receive Date: 20040401
  Receipt Date: 20040323
  Transmission Date: 20050107
  Serious: Yes (Hospitalization, Other)
  Sender: FDA-Public Use
  Company Number: FR-JNJFOC-20040302739

PATIENT
  Age: 40 Year
  Sex: Female
  Weight: 93 kg

DRUGS (5)
  1. REMICADE [Suspect]
     Indication: CROHN'S DISEASE
     Dosage: 450 MG, INTRAVENOUS
     Route: 042
     Dates: start: 20030630, end: 20031014
  2. PARIET (RABERPRAZOLE SODIUM) [Concomitant]
  3. IMUREL (AZATHIROPRINE) [Concomitant]
  4. PENTASA [Concomitant]
  5. PREDNISONE TAB [Concomitant]

REACTIONS (2)
  - LUPUS-LIKE SYNDROME [None]
  - SCAR [None]
